FAERS Safety Report 7535854-3 (Version None)
Quarter: 2011Q2

REPORT INFORMATION
  Report Type: 
  Country: None (occurrence: None)
  Receive Date: 20110602
  Receipt Date: 20110418
  Transmission Date: 20111010
  Serious: Yes (Hospitalization)
  Sender: FDA-Public Use
  Company Number: M1101940

PATIENT
  Age: 79 Year
  Sex: Male

DRUGS (2)
  1. KLOR-CON [Suspect]
     Indication: MINERAL SUPPLEMENTATION
     Dosage: 4 IN 1 D, ORAL
     Route: 048
     Dates: start: 20110101, end: 20110401
  2. ATENOLOL [Concomitant]

REACTIONS (8)
  - WEIGHT DECREASED [None]
  - DIARRHOEA [None]
  - VOMITING [None]
  - ASTHENIA [None]
  - DECREASED APPETITE [None]
  - NAUSEA [None]
  - ABDOMINAL DISCOMFORT [None]
  - FATIGUE [None]
